FAERS Safety Report 8967170 (Version 1)
Quarter: 2012Q4

REPORT INFORMATION
  Report Type: 
  Country: AT (occurrence: AT)
  Receive Date: 20121217
  Receipt Date: 20121217
  Transmission Date: 20130627
  Serious: Yes (Other)
  Sender: FDA-Public Use
  Company Number: AT-JNJFOC-20121202259

PATIENT
  Sex: Female

DRUGS (1)
  1. DUROGESIC [Suspect]
     Indication: INJURY
     Dosage: 2x100 ug/hr and 2x 25 ug/hr in total 250 ug
     Route: 062

REACTIONS (3)
  - Hyperthermia [Unknown]
  - Dyspnoea [Unknown]
  - Inappropriate schedule of drug administration [Unknown]
